FAERS Safety Report 25699058 (Version 1)
Quarter: 2025Q3

REPORT INFORMATION
  Report Type: Other
  Country: CN (occurrence: CN)
  Receive Date: 20250819
  Receipt Date: 20250819
  Transmission Date: 20251021
  Serious: Yes (Other)
  Sender: QILU PHARMACEUTICAL
  Company Number: CN-QILU PHARMACEUTICAL CO.LTD.-QLU-000205-2025

PATIENT
  Age: 43 Year
  Sex: Male
  Weight: 73.1 kg

DRUGS (7)
  1. TENOFOVIR DISOPROXIL FUMARATE [Suspect]
     Active Substance: TENOFOVIR DISOPROXIL FUMARATE
     Indication: Chronic hepatitis B
     Dosage: 0.3 G ONCE A DAY
     Route: 048
     Dates: start: 20250520
  2. PEGINTERFERON ALFA-2B [Suspect]
     Active Substance: PEGINTERFERON ALFA-2B
     Indication: Chronic hepatitis B
     Dosage: 180 UG ONCE A WEEK
     Route: 058
     Dates: start: 20250520, end: 20250721
  3. PEGINTERFERON ALFA-2B [Suspect]
     Active Substance: PEGINTERFERON ALFA-2B
     Route: 058
     Dates: start: 20250722
  4. Duo tang dan bai [Concomitant]
     Route: 048
     Dates: start: 20250722
  5. Duo tang dan bai [Concomitant]
  6. Xiaoyao [Concomitant]
     Route: 065
  7. Xiaoyao [Concomitant]

REACTIONS (2)
  - Platelet count decreased [Unknown]
  - White blood cell count decreased [Unknown]

NARRATIVE: CASE EVENT DATE: 20250722
